FAERS Safety Report 9551421 (Version 1)
Quarter: 2013Q3

REPORT INFORMATION
  Report Type: Spontaneous
  Country: US (occurrence: None)
  Receive Date: 20130724
  Receipt Date: 20130724
  Transmission Date: 20140515
  Serious: Yes (Hospitalization)
  Sender: FDA-Public Use
  Company Number: PHEH2012US011258

PATIENT
  Age: 81 Year
  Sex: Female

DRUGS (1)
  1. GLEEVEC (IMATINIB) UNKNOWN [Suspect]
     Indication: SOFT TISSUE CANCER
     Route: 048
     Dates: start: 20120210

REACTIONS (3)
  - Dehydration [None]
  - Urinary tract infection [None]
  - Asthenia [None]
